FAERS Safety Report 4557767-1 (Version None)
Quarter: 2005Q1

REPORT INFORMATION
  Report Type: 
  Country: None (occurrence: None)
  Receive Date: 20050103
  Receipt Date: 20040727
  Transmission Date: 20050727
  Serious: Yes (Other)
  Sender: FDA-Public Use
  Company Number: 2004UW15791

PATIENT
  Age: 71 Year
  Sex: Female
  Weight: 61.2356 kg

DRUGS (5)
  1. CRESTOR [Suspect]
     Indication: BLOOD CHOLESTEROL INCREASED
     Dosage: 10 MG  QD  PO
     Route: 048
     Dates: start: 20040625
  2. ATACAND [Concomitant]
  3. DEMADEX [Concomitant]
  4. ASPIRIN [Concomitant]
  5. VITAMINS [Concomitant]

REACTIONS (2)
  - BLOOD PRESSURE INCREASED [None]
  - HOT FLUSH [None]
